FAERS Safety Report 7231623-2 (Version None)
Quarter: 2011Q1

REPORT INFORMATION
  Report Type: 
  Country: None (occurrence: None)
  Receive Date: 20110118
  Receipt Date: 20110114
  Transmission Date: 20110831
  Serious: Yes (Other)
  Sender: FDA-Public Use
  Company Number: US-PFIZER INC-2011010182

PATIENT
  Sex: Female
  Weight: 65.76 kg

DRUGS (3)
  1. SIMVASTATIN [Concomitant]
     Indication: BLOOD CHOLESTEROL INCREASED
     Dosage: UNK
  2. NEXIUM [Concomitant]
     Dosage: UNK
  3. SPIRONOLACTONE [Suspect]
     Indication: SKIN DISORDER
     Dosage: 100 MG, DAILY
     Route: 048
     Dates: start: 20090101

REACTIONS (4)
  - MUCOSAL INFLAMMATION [None]
  - HYPERTONIC BLADDER [None]
  - MUCOSAL DRYNESS [None]
  - DRUG INEFFECTIVE FOR UNAPPROVED INDICATION [None]
